FAERS Safety Report 17543510 (Version 4)
Quarter: 2020Q3

REPORT INFORMATION
  Report Type: Spontaneous
  Country: CA (occurrence: CA)
  Receive Date: 20200316
  Receipt Date: 20200928
  Transmission Date: 20201102
  Serious: Yes (Other)
  Sender: FDA-Public Use
  Company Number: CA-TEVA-2020-CA-1198448

PATIENT

DRUGS (1)
  1. CLOPIDOGREL [Suspect]
     Active Substance: CLOPIDOGREL BISULFATE
     Dosage: 75 MILLIGRAM DAILY;
     Route: 065

REACTIONS (4)
  - Troponin increased [Unknown]
  - Catheter site haemorrhage [Unknown]
  - Extradural haematoma [Recovering/Resolving]
  - Back pain [Recovering/Resolving]
